FAERS Safety Report 4527783-4 (Version None)
Quarter: 2004Q4

REPORT INFORMATION
  Report Type: 
  Country: None (occurrence: None)
  Receive Date: 20041215
  Receipt Date: 20040831
  Transmission Date: 20050328
  Serious: Yes (Life-Threatening, Hospitalization)
  Sender: FDA-Public Use
  Company Number: JP-GLAXOSMITHKLINE-B0344295A

PATIENT
  Age: 62 Year
  Sex: Male

DRUGS (11)
  1. PAXIL [Suspect]
     Indication: BIPOLAR I DISORDER
     Dosage: 20MG PER DAY
     Route: 048
     Dates: start: 20020413, end: 20040825
  2. DEPROMEL [Suspect]
     Indication: BIPOLAR I DISORDER
     Dosage: 25MG THREE TIMES PER DAY
     Route: 048
     Dates: start: 20020327, end: 20040825
  3. LUVOX [Concomitant]
     Indication: BIPOLAR I DISORDER
     Dosage: 3U PER DAY
     Route: 048
     Dates: start: 20040911
  4. LEXOTAN [Concomitant]
     Indication: BIPOLAR I DISORDER
     Dosage: 6MG PER DAY
     Route: 048
     Dates: start: 20020718, end: 20040825
  5. BLADDERON [Concomitant]
     Indication: DYSURIA
     Dosage: 3U PER DAY
     Route: 048
     Dates: start: 20020327, end: 20040825
  6. MAZATICOL HYDROCHLORIDE [Concomitant]
     Dosage: 3U PER DAY
     Route: 048
     Dates: start: 20020710, end: 20040825
  7. GASMOTIN [Concomitant]
     Indication: INTESTINAL HYPOMOTILITY
     Dosage: 3U PER DAY
     Route: 048
     Dates: start: 20020907, end: 20040825
  8. INFERTILITY THERAPY UNSPECIFIED [Concomitant]
     Dosage: 6G PER DAY
     Route: 048
     Dates: start: 20020404, end: 20040825
  9. TINELAC [Concomitant]
     Indication: CONSTIPATION
     Dosage: 2U PER DAY
     Route: 048
     Dates: start: 20020327, end: 20040825
  10. GOODMIN [Concomitant]
     Indication: INSOMNIA
     Dosage: .25MG PER DAY
     Route: 048
     Dates: start: 20020518, end: 20040825
  11. DALMATE [Concomitant]
     Indication: INSOMNIA
     Dosage: 15MG PER DAY
     Route: 048
     Dates: start: 20020327, end: 20040825

REACTIONS (7)
  - ABDOMINAL DISTENSION [None]
  - BLOOD CREATINE PHOSPHOKINASE INCREASED [None]
  - DYSPNOEA [None]
  - MYOGLOBIN URINE PRESENT [None]
  - NEUROLEPTIC MALIGNANT SYNDROME [None]
  - PNEUMONIA [None]
  - PYREXIA [None]
